FAERS Safety Report 6280108-9 (Version None)
Quarter: 2009Q3

REPORT INFORMATION
  Report Type: 
  Country: None (occurrence: None)
  Receive Date: 20090723
  Receipt Date: 20090710
  Transmission Date: 20100115
  Serious: Yes (Other)
  Sender: FDA-Public Use
  Company Number: IE-GENENTECH-265632

PATIENT
  Sex: Female
  Weight: 70 kg

DRUGS (5)
  1. XOLAIR [Suspect]
     Indication: ASTHMA
     Dosage: 375 MG, Q2W
     Route: 058
     Dates: start: 20070312, end: 20080617
  2. XOLAIR [Suspect]
     Dosage: 375 MG, Q2W
     Route: 058
     Dates: start: 20080718, end: 20090119
  3. SERETIDE [Concomitant]
     Indication: DRUG USE FOR UNKNOWN INDICATION
     Dosage: 500 MG, UNK
     Route: 065
  4. VENTOLIN [Concomitant]
     Indication: DRUG USE FOR UNKNOWN INDICATION
     Route: 065
  5. TELFAST [Concomitant]
     Indication: DRUG USE FOR UNKNOWN INDICATION
     Dosage: UNK
     Route: 065

REACTIONS (3)
  - HERPES ZOSTER [None]
  - SINUSITIS [None]
  - URINARY TRACT INFECTION [None]
